FAERS Safety Report 8850492 (Version 2)
Quarter: 2014Q3

REPORT INFORMATION
  Report Type: Report from Study
  Country: US (occurrence: US)
  Receive Date: 20121019
  Receipt Date: 20140905
  Transmission Date: 20150326
  Serious: Yes (Death)
  Sender: FDA-Public Use
  Company Number: US-ROCHE-1130973

PATIENT
  Sex: Male

DRUGS (5)
  1. RITUXAN [Suspect]
     Active Substance: RITUXIMAB
     Indication: PROSTATE CANCER
     Route: 042
     Dates: start: 20021203, end: 20030826
  2. RITUXAN [Suspect]
     Active Substance: RITUXIMAB
     Indication: LUPUS VASCULITIS
  3. RITUXAN [Suspect]
     Active Substance: RITUXIMAB
     Indication: IMMUNE THROMBOCYTOPENIC PURPURA
  4. RITUXAN [Suspect]
     Active Substance: RITUXIMAB
     Indication: SYSTEMIC LUPUS ERYTHEMATOSUS
  5. PREDNISONE. [Concomitant]
     Active Substance: PREDNISONE

REACTIONS (6)
  - Off label use [Unknown]
  - Hepatic failure [Fatal]
  - Cardio-respiratory arrest [Fatal]
  - Back pain [Unknown]
  - Prostate cancer metastatic [Fatal]
  - Peripheral swelling [Unknown]
